FAERS Safety Report 4940345-X (Version None)
Quarter: 2006Q1

REPORT INFORMATION
  Report Type: 
  Country: None (occurrence: None)
  Receive Date: 20060310
  Receipt Date: 20060215
  Transmission Date: 20060701
  Serious: Yes (Life-Threatening, Other)
  Sender: FDA-Public Use
  Company Number: JP-MERCK-0602USA04904

PATIENT
  Age: 73 Year
  Sex: Male

DRUGS (11)
  1. PRINIVIL [Suspect]
     Indication: HYPERTENSION
     Route: 048
     Dates: start: 19990606, end: 20060211
  2. TOMIRON [Concomitant]
     Indication: NASOPHARYNGITIS
     Route: 048
     Dates: start: 20060207, end: 20060210
  3. PRANOPROFEN [Concomitant]
     Indication: NASOPHARYNGITIS
     Route: 048
     Dates: start: 20060207, end: 20060210
  4. ZYLORIC [Concomitant]
     Indication: HYPERLIPIDAEMIA
     Route: 048
     Dates: start: 20031224
  5. DIART [Concomitant]
     Indication: HYPERTENSION
     Route: 048
     Dates: start: 20030820
  6. NITROL (ISOSORBIDE DINITRATE) [Concomitant]
     Indication: ANGINA PECTORIS
     Route: 048
     Dates: start: 19981020
  7. LORELCO [Concomitant]
     Indication: HYPERLIPIDAEMIA
     Route: 048
     Dates: start: 20000321
  8. SIGMART [Concomitant]
     Indication: ANGINA PECTORIS
     Route: 048
     Dates: start: 19981020
  9. TENORMIN [Concomitant]
     Indication: HYPERTENSION
     Route: 048
     Dates: start: 19991025
  10. TENORMIN [Concomitant]
     Indication: ANGINA PECTORIS
     Route: 048
     Dates: start: 19991025
  11. BUFFERIN [Concomitant]
     Indication: ANGINA PECTORIS
     Route: 048
     Dates: start: 19981020, end: 20060211

REACTIONS (2)
  - ANGIONEUROTIC OEDEMA [None]
  - SWELLING [None]
